FAERS Safety Report 7934579-X (Version None)
Quarter: 2011Q4

REPORT INFORMATION
  Report Type: 
  Country: None (occurrence: None)
  Receive Date: 20111122
  Receipt Date: 20111116
  Transmission Date: 20120403
  Serious: Yes (Hospitalization)
  Sender: FDA-Public Use
  Company Number: JP-SANOFI-AVENTIS-2011SA065458

PATIENT
  Sex: Male

DRUGS (2)
  1. OXALIPLATIN [Suspect]
     Indication: RECTAL CANCER
     Dosage: THE PATIENT RECIEVED 3 CYCLES.
     Route: 041
  2. CAPECITABINE [Suspect]
     Indication: RECTAL CANCER
     Dosage: THE PATIENT RECIEVED THREE CYCLES.
     Route: 048

REACTIONS (2)
  - TUMOUR LYSIS SYNDROME [None]
  - RENAL FAILURE ACUTE [None]
